FAERS Safety Report 21958105 (Version 3)
Quarter: 2023Q1

REPORT INFORMATION
  Report Type: Spontaneous
  Country: KE (occurrence: KE)
  Receive Date: 20230206
  Receipt Date: 20230315
  Transmission Date: 20230418
  Serious: Yes (Other)
  Sender: FDA-Public Use
  Company Number: KE-GE HEALTHCARE-2023CSU000435

PATIENT
  Age: 48 Year
  Sex: Female

DRUGS (7)
  1. VISIPAQUE [Suspect]
     Active Substance: IODIXANOL
     Indication: Computerised tomogram thorax
     Dosage: 1 ML/KG, SINGLE
     Route: 042
     Dates: start: 20221213, end: 20221213
  2. VISIPAQUE [Suspect]
     Active Substance: IODIXANOL
     Indication: Chest discomfort
  3. VISIPAQUE [Suspect]
     Active Substance: IODIXANOL
     Indication: Dyspnoea
  4. VISIPAQUE [Suspect]
     Active Substance: IODIXANOL
     Indication: Fibrin D dimer increased
  5. BUDESONIDE\FORMOTEROL [Concomitant]
     Active Substance: BUDESONIDE\FORMOTEROL
     Dosage: 2 PUFFS 30 DAYS
  6. Montelukast sodium and levocetirizine dihydrochloride [Concomitant]
     Dosage: 1 TABLET 14 DAYS
  7. CLARITHROMYCIN [Concomitant]
     Active Substance: CLARITHROMYCIN
     Dosage: 1 TABLET 5 DAYS

REACTIONS (3)
  - Skin exfoliation [Recovered/Resolved]
  - Rash [Recovered/Resolved]
  - Extravasation [Recovered/Resolved]

NARRATIVE: CASE EVENT DATE: 20221213
